FAERS Safety Report 10098808 (Version 1)
Quarter: 2014Q2

REPORT INFORMATION
  Report Type: Spontaneous
  Country: US (occurrence: None)
  Receive Date: 20140422
  Receipt Date: 20140422
  Transmission Date: 20141212
  Serious: No
  Sender: FDA-Public Use
  Company Number: None

PATIENT
  Age: 61 Year
  Sex: Female
  Weight: 71.67 kg

DRUGS (7)
  1. ETHAMBUTOL [Suspect]
     Indication: MYCOBACTERIUM AVIUM COMPLEX INFECTION
     Dosage: 400MG, 2 1/2 PILLS ONCE DAILY MOUTH
     Route: 048
     Dates: start: 201305, end: 201310
  2. NEXIUM [Concomitant]
  3. LYRICA [Concomitant]
  4. PROPRANOLOL [Concomitant]
  5. CLARITHROMYCIN [Concomitant]
  6. VITAMIN D [Concomitant]
  7. KRELL OIL [Concomitant]

REACTIONS (2)
  - Vision blurred [None]
  - Impaired driving ability [None]
